FAERS Safety Report 8192054-4 (Version None)
Quarter: 2012Q1

REPORT INFORMATION
  Report Type: 
  Country: None (occurrence: None)
  Receive Date: 20120307
  Receipt Date: 20120306
  Transmission Date: 20120608
  Serious: Yes (Other)
  Sender: FDA-Public Use
  Company Number: PHEH2012US003787

PATIENT
  Sex: Female

DRUGS (3)
  1. EXFORGE HCT [Suspect]
     Indication: HYPERTENSION
     Dosage: 1 DF (320/10/25), QD
     Route: 048
  2. KLOR-CON [Concomitant]
     Indication: HYPOKALAEMIA
     Dosage: 10 MEQ, UNK
     Route: 048
  3. ATIVAN [Concomitant]
     Indication: ANXIETY
     Dosage: 0.5 MG, UNK

REACTIONS (3)
  - ILIAC ARTERY STENOSIS [None]
  - HYPERTENSION [None]
  - PERIPHERAL VASCULAR DISORDER [None]
